FAERS Safety Report 26144496 (Version 1)
Quarter: 2025Q4

REPORT INFORMATION
  Report Type: Spontaneous
  Country: US (occurrence: US)
  Receive Date: 20251211
  Receipt Date: 20251211
  Transmission Date: 20260117
  Serious: Yes (Other)
  Sender: ROCHE
  Company Number: US-ROCHE-10000451278

PATIENT
  Age: 33 Year
  Sex: Female

DRUGS (5)
  1. TOCILIZUMAB [Suspect]
     Active Substance: TOCILIZUMAB
     Indication: Rheumatoid arthritis
  2. UPADACITINIB [Concomitant]
     Active Substance: UPADACITINIB
  3. PREDNISONE [Concomitant]
     Active Substance: PREDNISONE
  4. PREDNISONE [Concomitant]
     Active Substance: PREDNISONE
  5. ABATACEPT [Concomitant]
     Active Substance: ABATACEPT

REACTIONS (1)
  - Cutaneous vasculitis [Recovering/Resolving]
